FAERS Safety Report 25971218 (Version 2)
Quarter: 2025Q4

REPORT INFORMATION
  Report Type: Spontaneous
  Country: EU (occurrence: EU)
  Receive Date: 20251028
  Receipt Date: 20251031
  Transmission Date: 20260117
  Serious: Yes (Death, Hospitalization, Other)
  Sender: GILEAD
  Company Number: EU-GILEAD-2025-0734031

PATIENT
  Age: 57 Year
  Sex: Male

DRUGS (1)
  1. YESCARTA [Suspect]
     Active Substance: AXICABTAGENE CILOLEUCEL
     Indication: Diffuse large B-cell lymphoma
     Dosage: UNK
     Route: 065

REACTIONS (6)
  - Aspergillus infection [Fatal]
  - Pneumonia [Fatal]
  - Diffuse large B-cell lymphoma [Fatal]
  - Cytokine release syndrome [Fatal]
  - Immune effector cell-associated neurotoxicity syndrome [Fatal]
  - Neutropenia [Fatal]
